FAERS Safety Report 23868902 (Version 2)
Quarter: 2024Q2

REPORT INFORMATION
  Report Type: Report from Study
  Country: US (occurrence: None)
  Receive Date: 20240517
  Receipt Date: 20240522
  Transmission Date: 20240715
  Serious: Yes (Other)
  Sender: FDA-Public Use
  Company Number: 2024A113631

PATIENT
  Sex: Female
  Weight: 121.6 kg

DRUGS (28)
  1. TEZSPIRE [Suspect]
     Active Substance: TEZEPELUMAB-EKKO
     Indication: Asthma
     Dosage: 210MG/ML EVERY FOUR WEEKS
     Route: 058
  2. BREZTRI [Suspect]
     Active Substance: BUDESONIDE\FORMOTEROL\GLYCOPYRROLATE
     Dosage: 160-9-4.8 MCG, 2 PUFFS
     Route: 055
  3. SYMBICORT [Suspect]
     Active Substance: BUDESONIDE\FORMOTEROL FUMARATE DIHYDRATE
     Dosage: UNKNOWN, 160-4.5 MCG, 2 PUFFS UNKNOWN
     Route: 055
  4. FASENRA [Suspect]
     Active Substance: BENRALIZUMAB
     Route: 058
  5. ALBUTEROL SULFATE [Suspect]
     Active Substance: ALBUTEROL SULFATE
     Dosage: 2 PUFFS
  6. ALBUTEROL SULFATE [Concomitant]
     Active Substance: ALBUTEROL SULFATE
     Dosage: 108 (90 BASE) MCG/ACT AEROSOL SOLUTION INHALE 2 PUFFS BY MOUTH EVERY 4 HOURS AS NEEDED
     Route: 048
  7. ALLOPURINOL [Concomitant]
     Active Substance: ALLOPURINOL
     Dosage: 1 TABLET ORALLY ONOE A DAY
  8. ANASTROZOLE [Concomitant]
     Active Substance: ANASTROZOLE
     Dosage: 1 TABLET ORALLY ONOE A DAY
  9. BUMETANIDE [Concomitant]
     Active Substance: BUMETANIDE
     Dosage: 1 TABLET ORALLY TWICE A DAY
  10. CRANBERRY [Concomitant]
     Active Substance: CRANBERRY
     Dosage: 450 MG CAPSULE AS DIRECTED ORALLY
  11. ELIQUIS [Concomitant]
     Active Substance: APIXABAN
     Dosage: 1 TABLET ORALLY TWICE A DAY
  12. FLUTICASONE PROPIONATE [Concomitant]
     Active Substance: FLUTICASONE PROPIONATE
     Dosage: 50 MCG/ ACT SUSPENSION 2 SPRAY IN EACH NOSTRIL NASALLY TWICE A DAY, NOTES TO PHARMACIST: PM
  13. GEMTESS [Concomitant]
     Dosage: 1 TABLET ORALLY ONOE A DAY
  14. HUMULIN NOS [Concomitant]
     Active Substance: INSULIN HUMAN
     Dosage: KWIKPEN 500 UNIT /ML SOLUTION PEN-INJECTOR AS DIRECTED SUBCUTANEOUS 120 UNITS QAM 120 UNITS QPM
  15. JARDIANCE [Concomitant]
     Active Substance: EMPAGLIFLOZIN
     Dosage: 1 TABLET ORALLY ONOE A DAY
  16. KLOR-CON M20 [Concomitant]
     Active Substance: POTASSIUM CHLORIDE
     Dosage: 20 MEQ TABLET EXTENDED RELEASE 1 TABLET -WITH FOOD ORALLY FOUI- TIMES DAILY
  17. LACTAID FAST [Concomitant]
     Dosage: 9000 UNIT TABLET 1 TABLET WITH FIRST BITE OF DAIRY CONTAINING FOOD ORALLY TWICE DAILY
  18. METOPROLOL SUCCINATE [Concomitant]
     Active Substance: METOPROLOL SUCCINATE
     Dosage: 24 HOUR 1 TABLET OL?ALLY ONCE A DAY
  19. MONTELUKAST SODIUM [Concomitant]
     Active Substance: MONTELUKAST SODIUM
     Dosage: 1 TABLET ORALLY ONCE A DAY
  20. PREDNISONE [Concomitant]
     Active Substance: PREDNISONE
     Dosage: 2 PILLS A DAY FOR S DAYS ORALLY ONCE A DAY
  21. PREGABALIN [Concomitant]
     Active Substance: PREGABALIN
     Dosage: 1 CAPSULE ORALLY ONCE DAILY
  22. SPIRONOLACTONE [Concomitant]
     Active Substance: SPIRONOLACTONE
     Dosage: 1 TABLET ORALLY ONCE A DAY
  23. TIKOSYN [Concomitant]
     Active Substance: DOFETILIDE
     Dosage: 1 CAPSULE ORALLY TWICE A DAY
  24. VITAMIN B COMPLEX [Concomitant]
     Active Substance: CYANOCOBALAMIN\DEXPANTHENOL\NIACINAMIDE\PYRIDOXINE HYDROCHLORIDE\RIBOFLAVIN 5^-PHOSPHATE SODIUM\THIA
     Dosage: AS DIRECTED ORALLY
  25. VITAMIN C [Concomitant]
     Active Substance: ASCORBIC ACID
     Dosage: LOOO MQ TABLET 1 TABLET ORALLY ONCE A DAY
  26. VITAMIN D [Concomitant]
     Active Substance: VITAMIN D NOS
     Dosage: (50000 UT) CAPSULE 1 CAPSULE ORALLY
  27. PROBIOTICS NOS [Concomitant]
     Active Substance: PROBIOTICS NOS
     Dosage: 1 CAPSULE ORALLY ONCE DAILY
  28. ZYRTEC [Concomitant]
     Active Substance: CETIRIZINE HYDROCHLORIDE
     Dosage: 1 TABLET ORALLY ONCE A DAY

REACTIONS (19)
  - Metastases to lymph nodes [Unknown]
  - Cardiac failure congestive [Unknown]
  - Breast cancer [Unknown]
  - Blood glucose increased [Unknown]
  - Type V hyperlipidaemia [Unknown]
  - Cough [Not Recovered/Not Resolved]
  - Obstructive sleep apnoea syndrome [Unknown]
  - Asthma [Unknown]
  - Wheezing [Unknown]
  - Dyspnoea [Unknown]
  - Hypertension [Unknown]
  - Productive cough [Not Recovered/Not Resolved]
  - Orthopnoea [Unknown]
  - Dyspnoea exertional [Unknown]
  - Upper-airway cough syndrome [Not Recovered/Not Resolved]
  - Rhinitis allergic [Unknown]
  - Oedema peripheral [Unknown]
  - Gastrooesophageal reflux disease [Unknown]
  - Drug ineffective [Unknown]
